FAERS Safety Report 8417528-X (Version None)
Quarter: 2012Q2

REPORT INFORMATION
  Report Type: 
  Country: None (occurrence: None)
  Receive Date: 20120606
  Receipt Date: 20120601
  Transmission Date: 20120825
  Serious: Yes (Hospitalization)
  Sender: FDA-Public Use
  Company Number: US-BAYER-2012-055464

PATIENT
  Age: 26 Year
  Sex: Female
  Weight: 134.69 kg

DRUGS (10)
  1. TYLENOL W/ CODEINE NO. 3 [Concomitant]
     Dosage: UNK
  2. ZOLOFT [Concomitant]
     Dosage: 50 MG, UNK
  3. DILAUDID [Concomitant]
     Dosage: UNK
  4. NEXIUM [Concomitant]
     Dosage: 40 MG, UNK
  5. SOMA [Concomitant]
     Dosage: UNK
  6. YAZ [Suspect]
     Dosage: UNK
  7. YASMIN [Suspect]
     Dosage: UNK
  8. SERTRALINE HYDROCHLORIDE [Concomitant]
     Dosage: 50 MG, UNK
     Dates: start: 20100723, end: 20120326
  9. DROSPIRENONE AND ETHINYL ESTRADIOL [Suspect]
     Dosage: UNK
  10. FENTANYL [Concomitant]
     Dosage: UNK
     Route: 062

REACTIONS (1)
  - DEEP VEIN THROMBOSIS [None]
